FAERS Safety Report 9251616 (Version 2)
Quarter: 2013Q2

REPORT INFORMATION
  Report Type: Spontaneous
  Country: IT (occurrence: IT)
  Receive Date: 20130424
  Receipt Date: 20130515
  Transmission Date: 20140414
  Serious: Yes (Hospitalization)
  Sender: FDA-Public Use
  Company Number: IT-ELI_LILLY_AND_COMPANY-IT201304004073

PATIENT
  Age: 45 Year
  Sex: Female

DRUGS (5)
  1. XERISTAR [Suspect]
     Dosage: 30 MG, QD
     Route: 048
     Dates: start: 20120401, end: 20120717
  2. DIIDERGOT [Concomitant]
     Indication: MIGRAINE
     Dosage: 40 DROPS, QD
     Route: 048
     Dates: start: 20120401, end: 20120717
  3. MAXALT                                  /NET/ [Concomitant]
     Indication: MIGRAINE
     Dosage: 5 MG, PRN
     Route: 048
     Dates: start: 20120401, end: 20120717
  4. ZOMIG [Concomitant]
     Indication: MIGRAINE
     Dosage: 2.5 MG, PRN
     Route: 048
     Dates: start: 20120401, end: 20120717
  5. LORMETAZEPAM [Concomitant]
     Indication: INSOMNIA
     Dosage: 30 DROPS, UNK
     Route: 048
     Dates: start: 20120401, end: 20120728

REACTIONS (2)
  - Urticaria [Recovered/Resolved]
  - Angioedema [Recovered/Resolved]
